FAERS Safety Report 7204369-4 (Version None)
Quarter: 2010Q4

REPORT INFORMATION
  Report Type: 
  Country: None (occurrence: None)
  Receive Date: 20101230
  Receipt Date: 20101222
  Transmission Date: 20110411
  Serious: Yes (Death)
  Sender: FDA-Public Use
  Company Number: BE-GENENTECH-309008

PATIENT
  Sex: Female
  Weight: 84.2 kg

DRUGS (8)
  1. PI3K INHIBITOR [Suspect]
     Indication: BREAST CANCER METASTATIC
     Dosage: 60 UNK, QD
     Route: 048
     Dates: start: 20091124, end: 20100209
  2. BEVACIZUMAB [Suspect]
     Indication: BREAST CANCER METASTATIC
     Dosage: 10 UNK, 2/MONTH
     Route: 042
     Dates: start: 20091223
  3. PACLITAXEL [Suspect]
     Indication: BREAST CANCER METASTATIC
     Dosage: 90 UNK, 3/MONTH
     Route: 042
     Dates: start: 20091125, end: 20100203
  4. LASIX [Concomitant]
     Indication: PRODUCT USED FOR UNKNOWN INDICATION
     Dosage: 40 MG, 3/WEEK
  5. INNOHEP [Concomitant]
     Indication: PRODUCT USED FOR UNKNOWN INDICATION
     Dosage: 14000 IU, QD
     Route: 058
  6. TRITACE [Concomitant]
     Indication: PRODUCT USED FOR UNKNOWN INDICATION
     Dosage: 2.5 MG, QD
  7. EMCONCOR [Concomitant]
     Indication: PRODUCT USED FOR UNKNOWN INDICATION
     Dosage: 2.5 MG, QD
  8. SERLAIN [Concomitant]
     Indication: PRODUCT USED FOR UNKNOWN INDICATION
     Dosage: 50 MG, QD

REACTIONS (1)
  - LEFT VENTRICULAR DYSFUNCTION [None]
